FAERS Safety Report 5988745-3 (Version None)
Quarter: 2008Q4

REPORT INFORMATION
  Report Type: 
  Country: None (occurrence: None)
  Receive Date: 20081210
  Receipt Date: 20081203
  Transmission Date: 20090506
  Serious: Yes (Other)
  Sender: FDA-Public Use
  Company Number: PHHY2008BR30828

PATIENT
  Age: 59 Year
  Sex: Female
  Weight: 52 kg

DRUGS (1)
  1. ELIDEL [Suspect]
     Indication: SEBORRHOEIC DERMATITIS
     Dosage: 1 DF, BID
     Route: 061

REACTIONS (6)
  - LIMB IMMOBILISATION [None]
  - LIMB INJURY [None]
  - NERVOUSNESS [None]
  - PAIN [None]
  - STRESS [None]
  - WEIGHT INCREASED [None]
